FAERS Safety Report 6307329-0 (Version None)
Quarter: 2009Q3

REPORT INFORMATION
  Report Type: 
  Country: None (occurrence: None)
  Receive Date: 20090811
  Receipt Date: 20090713
  Transmission Date: 20100115
  Serious: No
  Sender: FDA-Public Use
  Company Number: 1000007457

PATIENT
  Age: 49 Year
  Sex: Male

DRUGS (18)
  1. SAVELLA [Suspect]
     Indication: FIBROMYALGIA
     Dosage: SEE IMAGE
     Route: 048
     Dates: start: 20090612, end: 20090612
  2. SAVELLA [Suspect]
     Indication: FIBROMYALGIA
     Dosage: SEE IMAGE
     Route: 048
     Dates: start: 20090613, end: 20090614
  3. SAVELLA [Suspect]
     Indication: FIBROMYALGIA
     Dosage: SEE IMAGE
     Route: 048
     Dates: start: 20090615, end: 20090618
  4. SAVELLA [Suspect]
     Indication: FIBROMYALGIA
     Dosage: SEE IMAGE
     Route: 048
     Dates: start: 20090619
  5. OPANA [Concomitant]
  6. FOLIC ACID [Concomitant]
  7. METOPROLOL [Concomitant]
  8. PRILOSEC [Concomitant]
  9. RAMIPRIL [Concomitant]
  10. EFFEXOR [Concomitant]
  11. NIASPAN [Concomitant]
  12. SINGULAIR [Concomitant]
  13. CRESTOR [Concomitant]
  14. LIALDA [Concomitant]
  15. LOVAZA [Concomitant]
  16. COLACE [Concomitant]
  17. ASPIRIN [Concomitant]
  18. MULTI-VITAMINS [Concomitant]

REACTIONS (5)
  - BLOOD PRESSURE INCREASED [None]
  - FATIGUE [None]
  - HEART RATE INCREASED [None]
  - HYPERHIDROSIS [None]
  - LETHARGY [None]
